FAERS Safety Report 7634565-3 (Version None)
Quarter: 2011Q3

REPORT INFORMATION
  Report Type: 
  Country: None (occurrence: None)
  Receive Date: 20110725
  Receipt Date: 20110720
  Transmission Date: 20111222
  Serious: Yes (Other)
  Sender: FDA-Public Use
  Company Number: US-PFIZER INC-2011165431

PATIENT
  Age: 50 Year
  Sex: Female
  Weight: 90.703 kg

DRUGS (9)
  1. OXYCODONE [Concomitant]
     Dosage: UNK
  2. PAXIL [Concomitant]
     Dosage: UNK
  3. LITHIUM [Concomitant]
     Dosage: 300 MG, UNK
  4. XANAX [Suspect]
     Indication: TREMOR
     Dosage: 1 MG, UNK
     Route: 048
  5. AMLODIPINE [Concomitant]
     Indication: HYPERTENSION
     Dosage: 5 MG, UNK
  6. LISINOPRIL [Concomitant]
     Indication: HYPERTENSION
     Dosage: 20 MG, UNK
  7. MIRTAZAPINE [Concomitant]
     Dosage: 30 MG, UNK
  8. CHANTIX [Suspect]
     Indication: SMOKING CESSATION THERAPY
     Dosage: 0.5 MG, 1X/DAY
     Route: 048
     Dates: start: 20110601
  9. PRAVASTATIN [Concomitant]
     Dosage: 40 MG, UNK

REACTIONS (4)
  - DRUG INEFFECTIVE [None]
  - THROMBOSIS [None]
  - SUICIDAL IDEATION [None]
  - DEPRESSION [None]
